FAERS Safety Report 7320543-0 (Version None)
Quarter: 2011Q1

REPORT INFORMATION
  Report Type: 
  Country: None (occurrence: None)
  Receive Date: 20110228
  Receipt Date: 20110224
  Transmission Date: 20110831
  Serious: Yes (Other)
  Sender: FDA-Public Use
  Company Number: JP-PFIZER INC-2011040974

PATIENT
  Age: 75 Year
  Sex: Male

DRUGS (2)
  1. SOLU-MEDROL [Suspect]
     Dosage: 125 MG, UNK
     Route: 042
     Dates: start: 20110210, end: 20110210
  2. KASHIWADOL [Suspect]
     Dosage: 10 ML, UNK
     Route: 042
     Dates: start: 20110210, end: 20110210

REACTIONS (1)
  - PERIORBITAL OEDEMA [None]
